FAERS Safety Report 4591048-5 (Version None)
Quarter: 2005Q1

REPORT INFORMATION
  Report Type: 
  Country: None (occurrence: None)
  Receive Date: 20050222
  Receipt Date: 20050222
  Transmission Date: 20050727
  Serious: Yes (Life-Threatening)
  Sender: FDA-Public Use
  Company Number: None

PATIENT
  Age: 50 Year
  Sex: Male
  Weight: 68.0396 kg

DRUGS (1)
  1. ZOLOFT [Suspect]
     Indication: POST-TRAUMATIC STRESS DISORDER
     Dosage: 50MG  1X DAILY  ORAL
     Route: 048
     Dates: start: 20040504, end: 20040928

REACTIONS (3)
  - FEELING ABNORMAL [None]
  - HOMICIDAL IDEATION [None]
  - SUICIDAL IDEATION [None]
